FAERS Safety Report 12214023 (Version 1)
Quarter: 2016Q1

REPORT INFORMATION
  Report Type: Spontaneous
  Country: US (occurrence: US)
  Receive Date: 20160328
  Receipt Date: 20160328
  Transmission Date: 20160526
  Serious: Yes (Hospitalization, Other)
  Sender: FDA-Public Use
  Company Number: US-TEVA-645674USA

PATIENT
  Sex: Female
  Weight: 81.72 kg

DRUGS (1)
  1. COPAXONE [Suspect]
     Active Substance: GLATIRAMER ACETATE
     Indication: MULTIPLE SCLEROSIS
     Dosage: UNKNOWN FORM STRENGTH
     Route: 065

REACTIONS (6)
  - Injection site pain [Unknown]
  - Progressive multiple sclerosis [Unknown]
  - Multiple sclerosis [Unknown]
  - Myocardial infarction [Unknown]
  - Multiple sclerosis relapse [Unknown]
  - Memory impairment [Unknown]
